FAERS Safety Report 15016949 (Version 1)
Quarter: 2018Q2

REPORT INFORMATION
  Report Type: Spontaneous
  Country: CA (occurrence: CA)
  Receive Date: 20180615
  Receipt Date: 20180615
  Transmission Date: 20180711
  Serious: Yes (Other)
  Sender: FDA-Public Use
  Company Number: CA-TEVA-2018-CA-906051

PATIENT
  Age: 25 Year
  Sex: Male
  Weight: 78 kg

DRUGS (25)
  1. DIVALPROEX SODIUM. [Suspect]
     Active Substance: DIVALPROEX SODIUM
     Indication: AFFECTIVE DISORDER
  2. QUETIAPINE. [Concomitant]
     Active Substance: QUETIAPINE
     Indication: AUTISM SPECTRUM DISORDER
     Route: 048
  3. DIVALPROEX SODIUM. [Suspect]
     Active Substance: DIVALPROEX SODIUM
     Indication: AUTISM SPECTRUM DISORDER
     Route: 048
  4. AZITHROMYCIN ANHYDROUS. [Concomitant]
     Active Substance: AZITHROMYCIN ANHYDROUS
  5. BENZACLIN TOPICAL [Concomitant]
     Route: 061
  6. CALCIUM [Concomitant]
     Active Substance: CALCIUM
  7. HYDRASENSE CONGESTION RELIEF [Concomitant]
     Route: 045
  8. QUETIAPINE. [Concomitant]
     Active Substance: QUETIAPINE
     Indication: AFFECTIVE DISORDER
  9. ZINC GLUCONATE [Concomitant]
     Active Substance: ZINC GLUCONATE
  10. EPIVAL [Concomitant]
     Active Substance: DIVALPROEX SODIUM
  11. NASACORT AQ [Concomitant]
     Active Substance: TRIAMCINOLONE ACETONIDE
  12. SEROQUEL [Concomitant]
     Active Substance: QUETIAPINE FUMARATE
  13. TEARS PLUS [Concomitant]
     Route: 047
  14. FLOVENT DISKS - PWR INH 250MCG/BLISTER [Concomitant]
  15. FLOVENT HFA [Concomitant]
     Active Substance: FLUTICASONE PROPIONATE
  16. VITAMIN D2 [Concomitant]
     Active Substance: ERGOCALCIFEROL
  17. SYNTHROID [Concomitant]
     Active Substance: LEVOTHYROXINE SODIUM
  18. TOVIAZ [Concomitant]
     Active Substance: FESOTERODINE FUMARATE
  19. ZYLOPRIM [Concomitant]
     Active Substance: ALLOPURINOL
  20. OMEGA 3-6-9 [Concomitant]
     Active Substance: FISH OIL
  21. ACETAMINOPHEN. [Concomitant]
     Active Substance: ACETAMINOPHEN
  22. CETAPHIL ACNE PRINCIPLES [Concomitant]
  23. CIPRALEX [Concomitant]
     Active Substance: ESCITALOPRAM OXALATE
  24. DOMPERIDONE [Concomitant]
     Active Substance: DOMPERIDONE
  25. TECTA [Concomitant]
     Active Substance: PANTOPRAZOLE MAGNESIUM

REACTIONS (6)
  - Mental impairment [Recovered/Resolved]
  - Anxiety [Recovered/Resolved]
  - Depressed mood [Recovered/Resolved]
  - Irritability [Recovered/Resolved]
  - Mood swings [Recovered/Resolved]
  - Vomiting [Recovered/Resolved]
